FAERS Safety Report 5337850-3 (Version None)
Quarter: 2007Q2

REPORT INFORMATION
  Report Type: 
  Country: None (occurrence: None)
  Receive Date: 20070308
  Receipt Date: 20070118
  Transmission Date: 20071010
  Serious: No
  Sender: FDA-Public Use
  Company Number: IND-AE-07-SAN-002

PATIENT
  Age: 80 Year
  Sex: Female

DRUGS (12)
  1. SANCTURA [Suspect]
     Indication: HYPERTONIC BLADDER
     Dosage: 20MG - BID - PO
     Route: 048
     Dates: start: 20070104, end: 20070117
  2. SANCTURA [Suspect]
     Indication: HYPERTONIC BLADDER
     Dosage: 20MG - BID - PO
     Route: 048
     Dates: start: 20070120, end: 20070130
  3. LASIX [Concomitant]
  4. PREDNISONE TAB [Concomitant]
  5. ULTRAM [Concomitant]
  6. LIPITOR [Concomitant]
  7. COUMADIN [Concomitant]
  8. SYNTHROID [Concomitant]
  9. CARDIZEM [Concomitant]
  10. FOLIC ACID [Concomitant]
  11. AMBIEN [Concomitant]
  12. FOSAMAX [Concomitant]

REACTIONS (1)
  - ABDOMINAL PAIN UPPER [None]
